FAERS Safety Report 9624975 (Version 2)
Quarter: 2013Q4

REPORT INFORMATION
  Report Type: Spontaneous
  Country: US (occurrence: US)
  Receive Date: 20131016
  Receipt Date: 20131028
  Transmission Date: 20140711
  Serious: No
  Sender: FDA-Public Use
  Company Number: US-BIOGENIDEC-2013BI098197

PATIENT
  Age: 36 Year
  Sex: Female

DRUGS (1)
  1. TYSABRI [Suspect]
     Indication: MULTIPLE SCLEROSIS
     Route: 042
     Dates: start: 20130212

REACTIONS (4)
  - Vaccination site pain [Not Recovered/Not Resolved]
  - Vaccination site swelling [Recovered/Resolved]
  - Vaccination site cellulitis [Unknown]
  - Arthralgia [Recovered/Resolved]
